FAERS Safety Report 20340852 (Version 1)
Quarter: 2022Q1

REPORT INFORMATION
  Report Type: Other
  Country: TR (occurrence: None)
  Receive Date: 20220117
  Receipt Date: 20220117
  Transmission Date: 20220424
  Serious: Yes (Other)
  Sender: FDA-Public Use
  Company Number: TR-Navinta LLC-000213

PATIENT
  Age: 25 Year
  Sex: Female

DRUGS (1)
  1. ROPIVACAINE [Suspect]
     Active Substance: ROPIVACAINE
     Indication: Spinal anaesthesia
     Dosage: 15 MG OVER APPROXIMATELY 60 S.

REACTIONS (3)
  - Neurotoxicity [Recovered/Resolved]
  - Polyneuropathy [Recovered/Resolved]
  - Exposure during pregnancy [Unknown]
